FAERS Safety Report 9295160 (Version 1)
Quarter: 2013Q2

REPORT INFORMATION
  Report Type: Spontaneous
  Country: US (occurrence: None)
  Receive Date: 20130516
  Receipt Date: 20130516
  Transmission Date: 20140414
  Serious: Yes (Other)
  Sender: FDA-Public Use
  Company Number: None

PATIENT
  Age: 54 Year
  Sex: Female

DRUGS (1)
  1. ATORVASTATIN [Suspect]
     Indication: HYPERLIPIDAEMIA
     Route: 048
     Dates: start: 20130414, end: 20130501

REACTIONS (6)
  - Stevens-Johnson syndrome [None]
  - Anger [None]
  - Confusional state [None]
  - Amnesia [None]
  - Personality change [None]
  - Sensory loss [None]
